FAERS Safety Report 7987312-X (Version None)
Quarter: 2011Q4

REPORT INFORMATION
  Report Type: 
  Country: None (occurrence: None)
  Receive Date: 20111216
  Receipt Date: 20110929
  Transmission Date: 20120403
  Serious: Yes (Other)
  Sender: FDA-Public Use
  Company Number: US-BRISTOL-MYERS SQUIBB COMPANY-16157695

PATIENT
  Age: 16 Year
  Sex: Male

DRUGS (5)
  1. RIBAVIRIN [Suspect]
  2. PEGASYS [Suspect]
  3. ABILIFY [Suspect]
  4. VICTRELIS [Suspect]
     Dates: start: 20110815
  5. EFFEXOR [Suspect]

REACTIONS (2)
  - OVERDOSE [None]
  - CONVULSION [None]
